FAERS Safety Report 6888431-1 (Version None)
Quarter: 2010Q3

REPORT INFORMATION
  Report Type: 
  Country: None (occurrence: None)
  Receive Date: 20100730
  Receipt Date: 20100722
  Transmission Date: 20110219
  Serious: Yes (Hospitalization, Other)
  Sender: FDA-Public Use
  Company Number: US-ELI_LILLY_AND_COMPANY-US201007005350

PATIENT
  Sex: Male
  Weight: 95.238 kg

DRUGS (12)
  1. BYETTA [Suspect]
     Indication: TYPE 2 DIABETES MELLITUS
     Dosage: 5 UG, 2/D
     Route: 058
  2. BYETTA [Suspect]
     Dosage: 10 UG, 2/D
     Route: 058
  3. GLUCOPHAGE [Concomitant]
     Dosage: UNK D/F, 2/D
  4. COREG [Concomitant]
     Dosage: UNK D/F, 2/D
  5. RAMIPRIL [Concomitant]
     Dosage: UNK D/F, 2/D
  6. CRESTOR [Concomitant]
     Dosage: UNK D/F, DAILY (1/D)
  7. PLAVIX [Concomitant]
     Dosage: UNK D/F, DAILY (1/D)
  8. IRON [Concomitant]
     Dosage: UNK D/F, DAILY (1/D)
  9. ASCORBIC ACID [Concomitant]
     Dosage: UNK D/F, UNKNOWN
  10. ASPIRIN [Concomitant]
     Dosage: 81 MG, DAILY (1/D)
  11. FISH OIL [Concomitant]
     Dosage: UNK D/F, DAILY (1/D)
  12. VITAMIN D [Concomitant]
     Dosage: 500 IU, WEEKLY (1/W)

REACTIONS (5)
  - ASTHMA [None]
  - CARDIAC FAILURE CONGESTIVE [None]
  - CORONARY ARTERY OCCLUSION [None]
  - EJECTION FRACTION DECREASED [None]
  - INFLUENZA LIKE ILLNESS [None]
